FAERS Safety Report 7146604-7 (Version None)
Quarter: 2010Q4

REPORT INFORMATION
  Report Type: 
  Country: None (occurrence: None)
  Receive Date: 20101208
  Receipt Date: 20101130
  Transmission Date: 20110411
  Serious: Yes (Other)
  Sender: FDA-Public Use
  Company Number: US-PFIZER INC-2010161650

PATIENT
  Sex: Female

DRUGS (1)
  1. PRISTIQ [Suspect]
     Dosage: 50 MG, UNK

REACTIONS (2)
  - GASTROINTESTINAL DISORDER [None]
  - SUICIDAL IDEATION [None]
